FAERS Safety Report 6357225-8 (Version None)
Quarter: 2009Q3

REPORT INFORMATION
  Report Type: 
  Country: None (occurrence: None)
  Receive Date: 20090911
  Receipt Date: 20090826
  Transmission Date: 20100115
  Serious: Yes (Death, Other)
  Sender: FDA-Public Use
  Company Number: AUR-APL-2009-00576

PATIENT
  Age: 35 Year
  Sex: Male

DRUGS (4)
  1. SERTRALINE HCL [Suspect]
  2. METHADONE HCL [Suspect]
     Indication: PAIN
     Dosage: 20 TABLETS - X1 - ORAL
     Route: 048
  3. VENLAFAXINE [Suspect]
  4. TOPIRAMATE [Suspect]

REACTIONS (26)
  - ALCOHOL USE [None]
  - ANXIETY [None]
  - ASPIRATION [None]
  - BLOOD PRESSURE INCREASED [None]
  - BODY TEMPERATURE INCREASED [None]
  - BRADYCARDIA [None]
  - BRADYPHRENIA [None]
  - CARDIOPULMONARY FAILURE [None]
  - COMPLETED SUICIDE [None]
  - CONFUSIONAL STATE [None]
  - DEPRESSION [None]
  - DISORIENTATION [None]
  - DRUG TOXICITY [None]
  - FRUSTRATION [None]
  - GUN SHOT WOUND [None]
  - HEAD INJURY [None]
  - HEART RATE INCREASED [None]
  - INTENTIONAL OVERDOSE [None]
  - LOSS OF CONSCIOUSNESS [None]
  - NIGHTMARE [None]
  - PANIC REACTION [None]
  - RESPIRATORY RATE INCREASED [None]
  - SEROTONIN SYNDROME [None]
  - SLEEP APNOEA SYNDROME [None]
  - SPEECH DISORDER [None]
  - VOMITING [None]
